FAERS Safety Report 6656634-7 (Version None)
Quarter: 2010Q1

REPORT INFORMATION
  Report Type: 
  Country: None (occurrence: None)
  Receive Date: 20100329
  Receipt Date: 20100316
  Transmission Date: 20100710
  Serious: Yes (Hospitalization)
  Sender: FDA-Public Use
  Company Number: US-ELI_LILLY_AND_COMPANY-US201003004965

PATIENT
  Age: 90 Year
  Sex: Female

DRUGS (1)
  1. CYMBALTA [Suspect]
     Indication: DEPRESSION
     Dosage: 20 MG, UNK
     Dates: start: 20100104, end: 20100208

REACTIONS (7)
  - BRONCHITIS [None]
  - CEREBROVASCULAR DISORDER [None]
  - DISORIENTATION [None]
  - DRUG INEFFECTIVE [None]
  - HYPERSOMNIA [None]
  - INTENTIONAL DRUG MISUSE [None]
  - PNEUMONIA [None]
